FAERS Safety Report 4391164-7 (Version None)
Quarter: 2004Q2

REPORT INFORMATION
  Report Type: 
  Country: None (occurrence: None)
  Receive Date: 20040621
  Receipt Date: 20031114
  Transmission Date: 20050107
  Serious: Yes (Other)
  Sender: FDA-Public Use
  Company Number: USA-2003-0010571

PATIENT
  Age: 45 Year
  Sex: Female
  Weight: 106.6 kg

DRUGS (11)
  1. OXYCONTIN [Suspect]
     Indication: PAIN
     Dosage: 20 MG, Q12H, ORAL
     Route: 048
  2. SERZONE [Concomitant]
  3. NEURONTIN [Concomitant]
  4. IBUPROFEN [Concomitant]
  5. PRILOSEC [Concomitant]
  6. PREMARIN [Concomitant]
  7. KLONOPIN [Concomitant]
  8. CYCLOBENZAPRINE HCL [Concomitant]
  9. LODINE [Concomitant]
  10. SKELAXIN [Concomitant]
  11. ALBUTEROL [Concomitant]

REACTIONS (24)
  - ANXIETY [None]
  - CHILLS [None]
  - DECREASED APPETITE [None]
  - DEPRESSION [None]
  - DRUG ABUSER [None]
  - DRUG DEPENDENCE [None]
  - DYSPEPSIA [None]
  - DYSPNOEA EXERTIONAL [None]
  - EAR PAIN [None]
  - EMOTIONAL DISTRESS [None]
  - HOARSENESS [None]
  - KERATOCONJUNCTIVITIS SICCA [None]
  - NASAL CONGESTION [None]
  - NAUSEA [None]
  - NIGHT SWEATS [None]
  - PAIN [None]
  - PALPITATIONS [None]
  - PHARYNGITIS [None]
  - PYREXIA [None]
  - SINUSITIS [None]
  - SWELLING [None]
  - TINNITUS [None]
  - UPPER RESPIRATORY TRACT INFECTION [None]
  - URINARY INCONTINENCE [None]
